FAERS Safety Report 13782874 (Version 1)
Quarter: 2017Q3

REPORT INFORMATION
  Report Type: Report from Study
  Country: US (occurrence: US)
  Receive Date: 20170724
  Receipt Date: 20170724
  Transmission Date: 20171127
  Serious: Yes (Hospitalization, Other)
  Sender: FDA-Public Use
  Company Number: US-IPSEN BIOPHARMACEUTICALS, INC.-2016-08095

PATIENT
  Age: 76 Year
  Sex: Female
  Weight: 76 kg

DRUGS (14)
  1. METOPROLOL TARTRATE. [Concomitant]
     Active Substance: METOPROLOL TARTRATE
     Indication: HYPERTENSION
     Dates: start: 2015
  2. VITAMIN B12 [Concomitant]
     Active Substance: CYANOCOBALAMIN
     Route: 030
  3. LEVOTHYROXINE. [Concomitant]
     Active Substance: LEVOTHYROXINE
     Dosage: EVERY MORNING
     Route: 048
  4. GAVISCON [Concomitant]
     Active Substance: ALUMINUM HYDROXIDE\MAGNESIUM CARBONATE
     Indication: DYSPEPSIA
     Dosage: 1 TABLET TWICE A DAY
     Route: 048
  5. SOMATULINE AUTOGEL [Suspect]
     Active Substance: LANREOTIDE ACETATE
     Indication: NEUROENDOCRINE TUMOUR
     Dosage: 120 MG
     Route: 058
     Dates: start: 20150811, end: 20160906
  6. ASPIRIN. [Concomitant]
     Active Substance: ASPIRIN
     Route: 048
     Dates: end: 201609
  7. SUNITINIB [Concomitant]
     Active Substance: SUNITINIB
     Route: 048
     Dates: end: 201609
  8. VITAMIN D3 [Concomitant]
     Active Substance: CHOLECALCIFEROL
     Dosage: EVERY MORNING
     Route: 048
  9. ALLOPURINOL. [Concomitant]
     Active Substance: ALLOPURINOL
     Route: 048
  10. METOPROLOL SUCCINATE. [Concomitant]
     Active Substance: METOPROLOL SUCCINATE
     Dosage: 0.25 TABLET EVERY MONDAY, WEDNESDAY, FRIDAY, SUNDAY (IN THE EVENING)
     Route: 048
  11. CALTRATE WITH VITAMIN D [Concomitant]
     Active Substance: CALCIUM CARBONATE\CHOLECALCIFEROL
     Route: 048
  12. OMEPRAZOLE. [Concomitant]
     Active Substance: OMEPRAZOLE
     Dosage: EVERY AM
     Route: 048
  13. NORCO [Concomitant]
     Active Substance: ACETAMINOPHEN\HYDROCODONE BITARTRATE
     Indication: PAIN
     Dosage: 1 TABLET EVERY FOUR HOURS
     Route: 048
  14. CENTRUM SILVER WOMEN [Concomitant]
     Route: 048

REACTIONS (8)
  - Small intestinal obstruction [Recovered/Resolved]
  - Malnutrition [Unknown]
  - Drug ineffective [Unknown]
  - Disease progression [Unknown]
  - End stage renal disease [Unknown]
  - General physical health deterioration [Unknown]
  - Short-bowel syndrome [Unknown]
  - Cachexia [Unknown]

NARRATIVE: CASE EVENT DATE: 2016
